FAERS Safety Report 8869382 (Version 1)
Quarter: 2012Q4

REPORT INFORMATION
  Report Type: 
  Country: US (occurrence: US)
  Receive Date: 20121023
  Receipt Date: 20121023
  Transmission Date: 20130627
  Serious: Yes (Hospitalization)
  Sender: FDA-Public Use
  Company Number: US-AMGEN-USASP2012052029

PATIENT
  Age: 57 Year
  Sex: Female

DRUGS (2)
  1. ENBREL [Suspect]
     Indication: RHEUMATOID ARTHRITIS
     Dosage: 50 mg, qwk
     Dates: start: 20081028, end: 20120803
  2. METHOTREXATE [Concomitant]
     Dosage: UNK UNK, per chemo regim
     Dates: start: 1994

REACTIONS (2)
  - Cholecystitis infective [Recovered/Resolved]
  - Fatigue [Not Recovered/Not Resolved]
